FAERS Safety Report 8376328-X (Version None)
Quarter: 2012Q2

REPORT INFORMATION
  Report Type: 
  Country: None (occurrence: None)
  Receive Date: 20120517
  Receipt Date: 20120504
  Transmission Date: 20120825
  Serious: Yes (Disabling)
  Sender: FDA-Public Use
  Company Number: 1279703

PATIENT
  Age: 78 Year
  Sex: Female
  Weight: 69 kg

DRUGS (1)
  1. OXALIPLATIN [Suspect]
     Indication: COLON CANCER
     Dosage: 148 MG MILLIGRAM(S), INTRAVENOUS
     Route: 042
     Dates: start: 20120416, end: 20120416

REACTIONS (6)
  - HYPERTENSION [None]
  - PRODUCT QUALITY ISSUE [None]
  - LARYNGOSPASM [None]
  - PRODUCT SUBSTITUTION ISSUE [None]
  - NEUROPATHY PERIPHERAL [None]
  - GAIT DISTURBANCE [None]
